FAERS Safety Report 7040459-7 (Version None)
Quarter: 2010Q4

REPORT INFORMATION
  Report Type: 
  Country: None (occurrence: None)
  Receive Date: 20101008
  Receipt Date: 20101008
  Transmission Date: 20110411
  Serious: No
  Sender: FDA-Public Use
  Company Number: None

PATIENT
  Sex: Female
  Weight: 85.2762 kg

DRUGS (1)
  1. RECLAST [Suspect]
     Indication: OSTEOPOROSIS
     Dosage: 5MG/100ML X1 IV
     Route: 042
     Dates: start: 20090701

REACTIONS (4)
  - CONTUSION [None]
  - LIMB INJURY [None]
  - OEDEMA PERIPHERAL [None]
  - SKIN DISCOLOURATION [None]
